FAERS Safety Report 5375049-5 (Version None)
Quarter: 2007Q2

REPORT INFORMATION
  Report Type: 
  Country: None (occurrence: None)
  Receive Date: 20070629
  Receipt Date: 20070226
  Transmission Date: 20071010
  Serious: No
  Sender: FDA-Public Use
  Company Number: A0640975A

PATIENT
  Age: 61 Year
  Sex: Male

DRUGS (2)
  1. AVANDARYL [Suspect]
     Route: 048
     Dates: start: 20070222
  2. DIOVAN [Concomitant]

REACTIONS (2)
  - BLADDER PAIN [None]
  - DRUG INEFFECTIVE [None]
